FAERS Safety Report 5087542-3 (Version None)
Quarter: 2006Q3

REPORT INFORMATION
  Report Type: 
  Country: None (occurrence: None)
  Receive Date: 20060824
  Receipt Date: 20060816
  Transmission Date: 20061208
  Serious: Yes (Hospitalization)
  Sender: FDA-Public Use
  Company Number: JP-JPN-A200603189

PATIENT
  Age: 21 Year
  Sex: Female

DRUGS (3)
  1. EPIVIR [Suspect]
     Indication: HIV INFECTION
     Dosage: 150MG TWICE PER DAY
     Route: 048
     Dates: start: 20030903
  2. RETROVIR [Suspect]
     Indication: HIV INFECTION
     Dosage: 400MG PER DAY
     Route: 048
     Dates: start: 20030903
  3. VIRACEPT [Suspect]
     Indication: HIV INFECTION
     Dosage: 2500MG PER DAY
     Route: 048
     Dates: start: 20030903

REACTIONS (6)
  - ERYTHEMA MULTIFORME [None]
  - GENERALISED ERYTHEMA [None]
  - PIGMENTATION DISORDER [None]
  - PYREXIA [None]
  - RASH PRURITIC [None]
  - SCAB [None]
